FAERS Safety Report 7986222-1 (Version None)
Quarter: 2011Q4

REPORT INFORMATION
  Report Type: 
  Country: None (occurrence: None)
  Receive Date: 20111216
  Receipt Date: 20111116
  Transmission Date: 20120403
  Serious: Yes (Hospitalization, Other)
  Sender: FDA-Public Use
  Company Number: CN-GLAXOSMITHKLINE-B0765128A

PATIENT
  Age: 50 Year
  Sex: Female

DRUGS (4)
  1. VALPROATE SODIUM [Concomitant]
     Indication: EPILEPSY
     Route: 048
  2. LAMOTRIGINE [Suspect]
     Indication: EPILEPSY
     Route: 048
  3. SODIUM BROMIDE [Concomitant]
     Indication: EPILEPSY
     Route: 048
  4. PHENOBARBITAL TAB [Concomitant]
     Indication: EPILEPSY
     Route: 048

REACTIONS (9)
  - CONJUNCTIVAL HYPERAEMIA [None]
  - ERYTHEMA MULTIFORME [None]
  - MOUTH ULCERATION [None]
  - PYREXIA [None]
  - MUCOSAL EROSION [None]
  - RASH [None]
  - RASH MACULO-PAPULAR [None]
  - SINUS TACHYCARDIA [None]
  - RASH PRURITIC [None]
